FAERS Safety Report 16339471 (Version 1)
Quarter: 2019Q2

REPORT INFORMATION
  Report Type: Spontaneous
  Country: US (occurrence: US)
  Receive Date: 20190521
  Receipt Date: 20190521
  Transmission Date: 20190711
  Serious: No
  Sender: FDA-Public Use
  Company Number: US-SA-2019SA136291

PATIENT
  Sex: Female

DRUGS (21)
  1. AUBAGIO [Suspect]
     Active Substance: TERIFLUNOMIDE
     Dosage: 1 DF, QD
     Route: 048
     Dates: start: 20160621
  2. LIPITOR [Concomitant]
     Active Substance: ATORVASTATIN CALCIUM
     Dosage: UNK UNK, UNK
  3. LISINOPRIL. [Concomitant]
     Active Substance: LISINOPRIL
     Dosage: UNK UNK, UNK
  4. TIZANIDINE. [Concomitant]
     Active Substance: TIZANIDINE
     Dosage: UNK UNK, UNK
  5. ASPIRIN EC [Concomitant]
     Active Substance: ASPIRIN
     Dosage: UNK UNK, UNK
  6. NUEDEXTA [Concomitant]
     Active Substance: DEXTROMETHORPHAN HYDROBROMIDE\QUINIDINE SULFATE
     Dosage: UNK UNK, UNK
  7. PREDNISONE. [Concomitant]
     Active Substance: PREDNISONE
     Dosage: UNK UNK, UNK
  8. LEVETIRACETAM. [Concomitant]
     Active Substance: LEVETIRACETAM
     Dosage: UNK UNK, UNK
  9. OXYBUTYNIN. [Concomitant]
     Active Substance: OXYBUTYNIN CHLORIDE
     Dosage: UNK UNK, UNK
  10. BUTALBITAL, ASPIRIN, CAFFEINE AND CODEINE PHOSPHATE [Concomitant]
     Active Substance: ASPIRIN\BUTALBITAL\CAFFEINE\CODEINE PHOSPHATE
     Dosage: UNK UNK, UNK
  11. LASIX [Concomitant]
     Active Substance: FUROSEMIDE
     Dosage: UNK UNK, UNK
  12. CILOSTAZOL. [Concomitant]
     Active Substance: CILOSTAZOL
     Dosage: UNK UNK, UNK
  13. DOXYCYCLINE HYCLATE. [Concomitant]
     Active Substance: DOXYCYCLINE HYCLATE
     Dosage: UNK UNK, UNK
  14. METOPROLOL. [Concomitant]
     Active Substance: METOPROLOL
     Dosage: UNK UNK, UNK
  15. MUPIROCIN. [Concomitant]
     Active Substance: MUPIROCIN
     Dosage: UNK UNK, UNK
  16. QUETIAPINE. [Concomitant]
     Active Substance: QUETIAPINE
     Dosage: UNK UNK, UNK
  17. CIPRO [Concomitant]
     Active Substance: CIPROFLOXACIN HYDROCHLORIDE
     Dosage: UNK UNK, UNK
  18. AMITRIPTYLIN [Concomitant]
     Active Substance: AMITRIPTYLINE
     Dosage: UNK UNK, UNK
  19. BACLOFEN. [Concomitant]
     Active Substance: BACLOFEN
     Dosage: UNK UNK, UNK
  20. OMEPRAZOLE. [Concomitant]
     Active Substance: OMEPRAZOLE
     Dosage: UNK UNK, UNK
  21. QUETIAPINE. [Concomitant]
     Active Substance: QUETIAPINE

REACTIONS (1)
  - Drug ineffective [Not Recovered/Not Resolved]
